FAERS Safety Report 8419158-2 (Version None)
Quarter: 2012Q2

REPORT INFORMATION
  Report Type: 
  Country: None (occurrence: None)
  Receive Date: 20120607
  Receipt Date: 20120604
  Transmission Date: 20120825
  Serious: No
  Sender: FDA-Public Use
  Company Number: US-PFIZER INC-2012084037

PATIENT
  Sex: Female

DRUGS (7)
  1. CELEBREX [Suspect]
     Indication: NECK PAIN
     Dosage: 200 MG, DAILY
     Route: 048
     Dates: start: 20120301
  2. VIIBRYD [Concomitant]
     Indication: DEPRESSION
     Dosage: 30 MG, 1X/DAY
     Dates: start: 20111206
  3. NEXIUM [Concomitant]
     Dosage: 40 MG, 2X/DAY
     Dates: start: 20110129
  4. KLONOPIN [Concomitant]
     Indication: ANXIETY
     Dosage: 1 MG, 2X/DAY
     Dates: start: 20031224
  5. CELEBREX [Suspect]
     Indication: ARTHRITIS
  6. CELEBREX [Suspect]
     Indication: MIGRAINE
  7. DEXILANT [Concomitant]
     Indication: GASTROOESOPHAGEAL REFLUX DISEASE
     Dosage: UNK
     Dates: start: 20110402

REACTIONS (4)
  - ABDOMINAL DISCOMFORT [None]
  - DEPRESSION [None]
  - ANXIETY [None]
  - FEELING ABNORMAL [None]
